FAERS Safety Report 9226040 (Version 4)
Quarter: 2014Q2

REPORT INFORMATION
  Report Type: Report from Study
  Country: CA (occurrence: CA)
  Receive Date: 20130411
  Receipt Date: 20140605
  Transmission Date: 20141212
  Serious: Yes (Other)
  Sender: FDA-Public Use
  Company Number: CA-ROCHE-1211659

PATIENT
  Age: 68 Year
  Sex: Male
  Weight: 90.7 kg

DRUGS (15)
  1. RITUXAN [Suspect]
     Indication: GRANULOMATOSIS WITH POLYANGIITIS
     Route: 042
     Dates: start: 20110907
  2. RITUXAN [Suspect]
     Route: 042
     Dates: start: 20121126
  3. RITUXAN [Suspect]
     Route: 042
     Dates: start: 20130513
  4. DIPHENHYDRAMINE HCL [Concomitant]
     Indication: PREMEDICATION
     Route: 048
     Dates: start: 20110907
  5. ACETAMINOPHEN [Concomitant]
     Indication: PREMEDICATION
     Route: 048
     Dates: start: 20110907
  6. METHYLPREDNISOLONE [Concomitant]
     Indication: PREMEDICATION
     Route: 042
     Dates: start: 20110907
  7. PREDNISONE [Concomitant]
  8. NORVASC [Concomitant]
  9. COUMADIN [Concomitant]
  10. NPH INSULIN [Concomitant]
  11. HYDROCHLOROTHIAZIDE [Concomitant]
  12. ZANTAC [Concomitant]
  13. SEPTRA [Concomitant]
     Route: 065
  14. PRAVACHOL [Concomitant]
  15. LOTEMAX [Concomitant]
     Indication: INFLAMMATION
     Route: 065

REACTIONS (4)
  - Rotator cuff syndrome [Unknown]
  - Osteoarthritis [Unknown]
  - Intervertebral disc degeneration [Not Recovered/Not Resolved]
  - Corneal abrasion [Not Recovered/Not Resolved]
